FAERS Safety Report 8419272-1 (Version None)
Quarter: 2012Q2

REPORT INFORMATION
  Report Type: 
  Country: None (occurrence: None)
  Receive Date: 20120607
  Receipt Date: 20120529
  Transmission Date: 20120825
  Serious: Yes (Hospitalization)
  Sender: FDA-Public Use
  Company Number: US-ASTRAZENECA-2012SE35183

PATIENT
  Age: 64 Year
  Sex: Female
  Weight: 56.7 kg

DRUGS (4)
  1. SYMBICORT [Suspect]
     Dosage: 320 MCG BID
     Route: 055
     Dates: start: 20120301, end: 20120401
  2. BLOOD PRESSURE MEDICATION [Concomitant]
  3. ALBUTEROL [Concomitant]
  4. SYMBICORT [Suspect]
     Indication: CHRONIC OBSTRUCTIVE PULMONARY DISEASE
     Dosage: 320 MCG DAILY
     Route: 055
     Dates: start: 20111201, end: 20120301

REACTIONS (2)
  - PNEUMONIA [None]
  - DYSPNOEA [None]
